FAERS Safety Report 9190722 (Version 1)
Quarter: 2013Q1

REPORT INFORMATION
  Report Type: Spontaneous
  Country: US (occurrence: US)
  Receive Date: 20130326
  Receipt Date: 20130326
  Transmission Date: 20140127
  Serious: No
  Sender: FDA-Public Use
  Company Number: US-009507513-1303USA011747

PATIENT
  Age: 79 Year
  Sex: Female

DRUGS (4)
  1. DULERA [Suspect]
     Indication: DYSPNOEA
     Dosage: ONE PUFF IN MORNING, ONE PUFF IN EVENING, BID
     Route: 055
     Dates: start: 201203
  2. LIPITOR [Concomitant]
     Dosage: UNK
  3. PRIMIDONE [Concomitant]
     Dosage: UNK
  4. OMEPRAZOLE [Concomitant]
     Dosage: UNK

REACTIONS (3)
  - Dysphonia [Not Recovered/Not Resolved]
  - Dysphonia [Not Recovered/Not Resolved]
  - Drug ineffective [Unknown]
